FAERS Safety Report 6614607-4 (Version None)
Quarter: 2010Q1

REPORT INFORMATION
  Report Type: 
  Country: None (occurrence: None)
  Receive Date: 20100226
  Receipt Date: 20100213
  Transmission Date: 20100710
  Serious: Yes (Hospitalization, Other)
  Sender: FDA-Public Use
  Company Number: 2010AP000289

PATIENT
  Age: 52 Year
  Sex: Female
  Weight: 49 kg

DRUGS (12)
  1. MIDAZOLAM HCL [Suspect]
     Indication: GENERAL ANAESTHESIA
     Dosage: 2 MG;
  2. FENTANYL [Suspect]
     Indication: GENERAL ANAESTHESIA
     Dosage: 100 UG
  3. PROPOFOL [Suspect]
     Indication: GENERAL ANAESTHESIA
     Dosage: 100 MG
  4. SUCCINYLCHOLINE CHLORIDE [Suspect]
     Indication: GENERAL ANAESTHESIA
     Dosage: 40 MG
  5. ISOFLURANE [Suspect]
     Indication: GENERAL ANAESTHESIA
     Dosage: 1 PCT
  6. PREGABALIN [Concomitant]
  7. DULOXETINE HYDROCHLORIDE [Concomitant]
  8. TRAMADOL HCL [Concomitant]
  9. PARACETAMOL [Concomitant]
  10. HYDROCODONE [Concomitant]
  11. GABAPENTIN [Concomitant]
  12. DEXTROPROPOXYPHENE [Concomitant]

REACTIONS (8)
  - COMPLEX REGIONAL PAIN SYNDROME [None]
  - DELAYED RECOVERY FROM ANAESTHESIA [None]
  - DEPRESSED LEVEL OF CONSCIOUSNESS [None]
  - MYDRIASIS [None]
  - NAUSEA [None]
  - OVERDOSE [None]
  - UNRESPONSIVE TO STIMULI [None]
  - VOMITING [None]
